FAERS Safety Report 6469201-5 (Version None)
Quarter: 2009Q4

REPORT INFORMATION
  Report Type: 
  Country: None (occurrence: None)
  Receive Date: 20091203
  Receipt Date: 20071016
  Transmission Date: 20100525
  Serious: Yes (Hospitalization)
  Sender: FDA-Public Use
  Company Number: JP-ELI_LILLY_AND_COMPANY-JP200708004577

PATIENT
  Sex: Female
  Weight: 45.6 kg

DRUGS (19)
  1. GEMZAR [Suspect]
     Indication: YOLK SAC TUMOUR SITE UNSPECIFIED
     Dosage: 1400 MG, UNK
     Route: 042
     Dates: start: 20070621, end: 20070621
  2. GEMZAR [Suspect]
     Dosage: 1400 MG, UNK
     Route: 042
     Dates: start: 20070705, end: 20070705
  3. GEMZAR [Suspect]
     Dosage: 1000 MG, UNK
     Route: 042
     Dates: start: 20070719, end: 20070719
  4. GEMZAR [Suspect]
     Dosage: 1000 MG, UNK
     Route: 042
     Dates: start: 20070802, end: 20070802
  5. ELPLAT [Concomitant]
     Indication: YOLK SAC TUMOUR SITE UNSPECIFIED
     Dosage: 60 MG, UNK
     Route: 042
     Dates: start: 20070621, end: 20070621
  6. ELPLAT [Concomitant]
     Dosage: 60 MG, UNK
     Route: 042
     Dates: start: 20070705, end: 20070705
  7. ELPLAT [Concomitant]
     Dosage: 180 MG, UNK
     Route: 042
     Dates: start: 20070719, end: 20070719
  8. ELPLAT [Concomitant]
     Dosage: 180 MG, UNK
     Route: 042
     Dates: start: 20070802, end: 20070802
  9. KYTRIL [Concomitant]
     Indication: PROPHYLAXIS OF NAUSEA AND VOMITING
     Dosage: 2 MG, UNK
     Route: 042
     Dates: start: 20070621, end: 20070621
  10. KYTRIL [Concomitant]
     Dosage: 2 MG, UNK
     Route: 042
     Dates: start: 20070705, end: 20070705
  11. KYTRIL [Concomitant]
     Dosage: 2 MG, UNK
     Route: 042
     Dates: start: 20070719, end: 20070719
  12. KYTRIL [Concomitant]
     Dosage: 2 MG, UNK
     Route: 042
     Dates: start: 20070802, end: 20070802
  13. DECADRON /NET/ [Concomitant]
     Indication: PROPHYLAXIS OF NAUSEA AND VOMITING
     Dosage: 8 MG, UNK
     Route: 042
     Dates: start: 20070621, end: 20070621
  14. DECADRON /NET/ [Concomitant]
     Dosage: 8 MG, UNK
     Route: 042
     Dates: start: 20070705, end: 20070705
  15. DECADRON /NET/ [Concomitant]
     Dosage: 8 MG, UNK
     Route: 042
     Dates: start: 20070719, end: 20070719
  16. DECADRON /NET/ [Concomitant]
     Dosage: 8 MG, UNK
     Route: 042
     Dates: start: 20070802, end: 20070802
  17. BAKTAR [Concomitant]
     Indication: PROPHYLAXIS
     Dosage: 2 D/F, DAILY (1/D)
     Route: 048
     Dates: start: 20070621, end: 20070812
  18. ZOVIRAX /GRC/ [Concomitant]
     Indication: PROPHYLAXIS
     Dosage: 4 D/F, DAILY (1/D)
     Route: 048
     Dates: start: 20070621, end: 20070812
  19. DIFLUCAN [Concomitant]
     Indication: INFECTION PROPHYLAXIS
     Dosage: 2 D/F, DAILY (1/D)
     Route: 048
     Dates: start: 20070621, end: 20070812

REACTIONS (2)
  - HAEMOLYTIC URAEMIC SYNDROME [None]
  - PERICARDIAL EFFUSION [None]
